FAERS Safety Report 8234236-9 (Version None)
Quarter: 2012Q1

REPORT INFORMATION
  Report Type: 
  Country: None (occurrence: None)
  Receive Date: 20120326
  Receipt Date: 20120313
  Transmission Date: 20120608
  Serious: Yes (Other)
  Sender: FDA-Public Use
  Company Number: GB-TEVA-329571ISR

PATIENT
  Age: 44 Year
  Sex: Female
  Weight: 63.5 kg

DRUGS (4)
  1. ZONEGRAN [Interacting]
     Indication: PRODUCT USED FOR UNKNOWN INDICATION
     Dosage: UNKNOWN
     Route: 048
     Dates: start: 20100707, end: 20100101
  2. PHENYTOIN [Suspect]
     Indication: PRODUCT USED FOR UNKNOWN INDICATION
     Dosage: UNKNOWN
     Dates: start: 20100919, end: 20100923
  3. ZONEGRAN [Interacting]
     Dosage: 100MG IN AM, 150MG IN PM
     Route: 048
     Dates: start: 20100101, end: 20100928
  4. PREGABALIN [Concomitant]

REACTIONS (6)
  - DEHYDRATION [None]
  - DRUG INTERACTION [None]
  - NAUSEA [None]
  - DIARRHOEA [None]
  - VOMITING [None]
  - RASH [None]
